FAERS Safety Report 5102825-6 (Version None)
Quarter: 2006Q3

REPORT INFORMATION
  Report Type: 
  Country: None (occurrence: None)
  Receive Date: 20060907
  Receipt Date: 20060830
  Transmission Date: 20061208
  Serious: Yes (Hospitalization)
  Sender: FDA-Public Use
  Company Number: 2006BI012412

PATIENT
  Age: 51 Year
  Sex: Female
  Weight: 67 kg

DRUGS (6)
  1. AVONEX [Suspect]
     Indication: MULTIPLE SCLEROSIS
     Dosage: 30 UG; QW; IM
     Route: 030
     Dates: start: 20030501, end: 20060512
  2. SYMBICORT TURBUHALER  DRACO [Concomitant]
  3. LEVOTHYROXINE SODIUM [Concomitant]
  4. ESOMEPRAZOLE MAGNESIUM [Concomitant]
  5. CIMICIFUGA RACEMOSA [Concomitant]
  6. IBUPROFEN [Concomitant]

REACTIONS (2)
  - BACTERIAL INFECTION [None]
  - PNEUMONIA [None]
